FAERS Safety Report 9294273 (Version 1)
Quarter: 2013Q2

REPORT INFORMATION
  Report Type: Spontaneous
  Country: US (occurrence: US)
  Receive Date: 20130516
  Receipt Date: 20130516
  Transmission Date: 20140414
  Serious: No
  Sender: FDA-Public Use
  Company Number: US-BANPHARM-20130627

PATIENT
  Age: 68 Year
  Sex: Female
  Weight: 77.11 kg

DRUGS (4)
  1. IBUPROFEN CAPSULES 200 MG [Suspect]
     Indication: PYREXIA
     Dosage: 1 DF,Q6H,
     Route: 048
     Dates: start: 20130126, end: 20130127
  2. OSCILLOCOCCINUM [Concomitant]
  3. SAMBUCOL [Concomitant]
  4. LEVOTHYROXIN [Concomitant]

REACTIONS (5)
  - Pain of skin [Not Recovered/Not Resolved]
  - Eye swelling [Not Recovered/Not Resolved]
  - Urticaria [Not Recovered/Not Resolved]
  - Ear swelling [Not Recovered/Not Resolved]
  - Erythema [Not Recovered/Not Resolved]
